FAERS Safety Report 4913728-1 (Version None)
Quarter: 2006Q1

REPORT INFORMATION
  Report Type: 
  Country: None (occurrence: None)
  Receive Date: 20060210
  Receipt Date: 20060207
  Transmission Date: 20060701
  Serious: Yes (Life-Threatening, Hospitalization)
  Sender: FDA-Public Use
  Company Number: HQWYE137923DEC05

PATIENT
  Age: 73 Year
  Sex: Male

DRUGS (7)
  1. INDERAL LA [Suspect]
     Indication: AORTIC DISSECTION
     Dosage: ORAL
     Route: 048
     Dates: start: 20020826, end: 20020903
  2. INDERAL LA [Suspect]
     Indication: HYPERTENSION
     Dosage: ORAL
     Route: 048
     Dates: start: 20020826, end: 20020903
  3. LEVOFLOXACIN [Suspect]
     Indication: UPPER RESPIRATORY TRACT INFLAMMATION
     Dosage: ORAL
     Route: 048
     Dates: start: 20020830, end: 20020902
  4. LASIX [Suspect]
     Indication: AORTIC DISSECTION
     Dosage: ORAL
     Route: 048
     Dates: start: 20020831, end: 20020903
  5. NORVASC [Suspect]
     Indication: AORTIC DISSECTION
     Dosage: ORAL
     Route: 048
     Dates: start: 20020819, end: 20020910
  6. ENALAPRIL MALEATE [Suspect]
     Indication: AORTIC DISSECTION
     Dosage: ORAL
     Route: 048
     Dates: start: 20020822, end: 20020903
  7. KALIMATE (CALCIUM POLYSTYRENE SULFONATE) [Concomitant]

REACTIONS (2)
  - CYTOMEGALOVIRUS INFECTION [None]
  - TOXIC EPIDERMAL NECROLYSIS [None]
